FAERS Safety Report 16085550 (Version 1)
Quarter: 2019Q2

REPORT INFORMATION
  Report Type: Spontaneous
  Country: US (occurrence: US)
  Receive Date: 20190318
  Receipt Date: 20190318
  Transmission Date: 20190711
  Serious: Yes (Disabling, Other)
  Sender: FDA-Public Use
  Company Number: None

PATIENT
  Age: 65 Year
  Sex: Female
  Weight: 74.25 kg

DRUGS (12)
  1. OSTEO BI-FLEX [Concomitant]
     Active Substance: CHONDROITIN SULFATE A\GLUCOSAMINE
  2. METHYL FOLATE [Concomitant]
  3. LOSARTAN POTASSIUM. [Suspect]
     Active Substance: LOSARTAN POTASSIUM
     Indication: HYPERTENSION
     Dosage: ?          QUANTITY:30 TABLET(S);?
     Route: 048
  4. TUMS [Concomitant]
     Active Substance: CALCIUM CARBONATE
  5. VITAMIN D2 [Concomitant]
     Active Substance: ERGOCALCIFEROL
  6. CALTRATE [Concomitant]
     Active Substance: CALCIUM CARBONATE
  7. MAGNESIUM [Concomitant]
     Active Substance: MAGNESIUM
  8. SUMATRIPTAN SUCCINATE. [Concomitant]
     Active Substance: SUMATRIPTAN SUCCINATE
  9. SIMVASTATIN. [Concomitant]
     Active Substance: SIMVASTATIN
  10. ESCITALOPRAM [Concomitant]
     Active Substance: ESCITALOPRAM OXALATE
  11. FISH OIL [Concomitant]
     Active Substance: FISH OIL
  12. METHYL B-12 [Concomitant]

REACTIONS (4)
  - Suspected product contamination [None]
  - Rash pruritic [None]
  - Product quality issue [None]
  - Procedural pain [None]

NARRATIVE: CASE EVENT DATE: 20190203
